FAERS Safety Report 7747132-8 (Version None)
Quarter: 2011Q3

REPORT INFORMATION
  Report Type: 
  Country: None (occurrence: None)
  Receive Date: 20110907
  Receipt Date: 20110823
  Transmission Date: 20111222
  Serious: Yes (Hospitalization, Other)
  Sender: FDA-Public Use
  Company Number: TPA2011A04774

PATIENT
  Age: 6 Decade
  Sex: Male
  Weight: 97.7502 kg

DRUGS (4)
  1. JANUVIA [Concomitant]
  2. GLIMEPIRIDE [Concomitant]
  3. METFORMIN HCL [Concomitant]
  4. ACTOS [Suspect]
     Indication: TYPE 2 DIABETES MELLITUS
     Dosage: 40 MG, 1 IN 1 D, PER ORAL
     Route: 048
     Dates: start: 20080401, end: 20101001

REACTIONS (1)
  - RENAL CANCER [None]
